FAERS Safety Report 4768234-4 (Version None)
Quarter: 2005Q3

REPORT INFORMATION
  Report Type: 
  Country: None (occurrence: None)
  Receive Date: 20050914
  Receipt Date: 20041230
  Transmission Date: 20060218
  Serious: Yes (Hospitalization)
  Sender: FDA-Public Use
  Company Number: FR-BRISTOL-MYERS SQUIBB COMPANY-12841359

PATIENT
  Age: 67 Year
  Sex: Male

DRUGS (2)
  1. SINEMET LP TABS 50 MG/200 MG [Suspect]
     Indication: PARKINSON'S DISEASE
     Dosage: DOSE VALUE:  8 TO 10 TABLETS DAILY
     Route: 048
  2. STILNOX [Suspect]

REACTIONS (4)
  - PARKINSON'S DISEASE [None]
  - PERSONALITY CHANGE [None]
  - SLEEP DISORDER [None]
  - SUICIDE ATTEMPT [None]
